FAERS Safety Report 6279116-3 (Version None)
Quarter: 2009Q3

REPORT INFORMATION
  Report Type: 
  Country: None (occurrence: None)
  Receive Date: 20090723
  Receipt Date: 20090716
  Transmission Date: 20100115
  Serious: Yes (Hospitalization, Other)
  Sender: FDA-Public Use
  Company Number: US-BRISTOL-MYERS SQUIBB COMPANY-14452478

PATIENT
  Age: 64 Year
  Sex: Female

DRUGS (2)
  1. SPRYCEL [Suspect]
     Indication: CHRONIC MYELOID LEUKAEMIA
     Dosage: 1DOSAGEFORM= 100(UNIT NOT SPECIFIED) INTERRUPTED ON 12DEC2008. DISCONTINUED ON 18MAY2009.
     Route: 048
     Dates: start: 20060217, end: 20090518
  2. LASIX [Suspect]
     Indication: PLEURAL EFFUSION

REACTIONS (4)
  - DEHYDRATION [None]
  - DYSPNOEA [None]
  - RENAL FAILURE [None]
  - VOMITING [None]
